FAERS Safety Report 14308707 (Version 2)
Quarter: 2017Q4

REPORT INFORMATION
  Report Type: Report from Study
  Country: FR (occurrence: FR)
  Receive Date: 20171220
  Receipt Date: 20171229
  Transmission Date: 20180321
  Serious: Yes (Hospitalization, Other)
  Sender: FDA-Public Use
  Company Number: FR-JAZZ-2017-FR-016842

PATIENT

DRUGS (9)
  1. AMOXICILLIN. [Concomitant]
     Active Substance: AMOXICILLIN
     Indication: ANTIBIOTIC THERAPY
     Dosage: 1.5 G, QD
     Route: 048
     Dates: start: 20160517, end: 20160718
  2. HYDROCORTISONE. [Concomitant]
     Active Substance: HYDROCORTISONE
     Indication: ANTIINFLAMMATORY THERAPY
     Dosage: 10 MG, QD
     Route: 048
     Dates: start: 20160526
  3. ZOVIRAX [Concomitant]
     Active Substance: ACYCLOVIR
     Indication: ANTIVIRAL PROPHYLAXIS
     Dosage: 2.4 G, QD
     Route: 048
     Dates: start: 20160523, end: 20161116
  4. DEFITELIO [Suspect]
     Active Substance: DEFIBROTIDE SODIUM
     Dosage: INCRESED DEFIBROTIDE
     Route: 042
     Dates: start: 20160504
  5. BACTRIM [Concomitant]
     Active Substance: SULFAMETHOXAZOLE\TRIMETHOPRIM
     Indication: ANTIBIOTIC THERAPY
     Dosage: 600 MG, QD
     Route: 048
     Dates: start: 20160630, end: 20170716
  6. DEFITELIO [Suspect]
     Active Substance: DEFIBROTIDE SODIUM
     Indication: PROPHYLAXIS
     Dosage: 25 MG/KG, QD
     Route: 042
     Dates: start: 20160322, end: 20160504
  7. AMLOR [Concomitant]
     Active Substance: AMLODIPINE BESYLATE
     Indication: HYPOTENSION
     Dosage: 10 MG, QD
     Route: 048
     Dates: start: 20160422, end: 20160718
  8. POSACONAZOLE [Concomitant]
     Active Substance: POSACONAZOLE
     Indication: ANTIFUNGAL TREATMENT
     Dosage: 300 MG, QD
     Route: 048
     Dates: start: 20160517, end: 20160718
  9. NEORAL [Concomitant]
     Active Substance: CYCLOSPORINE
     Indication: PROPHYLAXIS AGAINST TRANSPLANT REJECTION
     Dosage: 70 MG, QD
     Route: 048
     Dates: start: 20160427

REACTIONS (6)
  - Cardiac tamponade [Recovered/Resolved]
  - Cardiogenic shock [Recovered/Resolved]
  - Pyrexia [Recovered/Resolved]
  - Pleural effusion [Recovered/Resolved]
  - Renal failure [Recovered/Resolved]
  - Haemorrhage [Recovered/Resolved]

NARRATIVE: CASE EVENT DATE: 20160718
